FAERS Safety Report 7502723-4 (Version None)
Quarter: 2011Q2

REPORT INFORMATION
  Report Type: 
  Country: None (occurrence: None)
  Receive Date: 20110524
  Receipt Date: 20110524
  Transmission Date: 20111010
  Serious: No
  Sender: FDA-Public Use
  Company Number: None

PATIENT
  Sex: Male

DRUGS (1)
  1. SUTENT [Suspect]
     Dosage: SUTENT 50 MG CAPSULE TAKE 1 CAPSULE BY MOUTH EVERY DAY FOR 28 DAYS EVERY 42 DAYS
     Route: 048

REACTIONS (4)
  - RASH [None]
  - NODULE [None]
  - STOMATITIS [None]
  - PAIN IN EXTREMITY [None]
